FAERS Safety Report 4301247-5 (Version None)
Quarter: 2004Q1

REPORT INFORMATION
  Report Type: 
  Country: None (occurrence: None)
  Receive Date: 20040217
  Receipt Date: 20040114
  Transmission Date: 20041129
  Serious: No
  Sender: FDA-Public Use
  Company Number: PHEH2004US00936

PATIENT
  Sex: 0

DRUGS (1)
  1. GLEEVEC (IMATINIB) TABLET, 100 MG [Suspect]
     Dosage: 400 MG, QD, ORAL

REACTIONS (1)
  - ILL-DEFINED DISORDER [None]
